FAERS Safety Report 7549411-6 (Version None)
Quarter: 2011Q2

REPORT INFORMATION
  Report Type: 
  Country: None (occurrence: None)
  Receive Date: 20110615
  Receipt Date: 20050207
  Transmission Date: 20111010
  Serious: Yes (Hospitalization, Other)
  Sender: FDA-Public Use
  Company Number: PHFR2004IE04510

PATIENT
  Sex: Male

DRUGS (3)
  1. ATENOLOL [Concomitant]
     Indication: HYPERTENSION
     Route: 048
  2. CLOZAPINE [Suspect]
     Indication: SCHIZOPHRENIA
     Route: 048
     Dates: start: 20010309, end: 20041204
  3. FRUMIL [Concomitant]
     Indication: HYPERTENSION
     Route: 048

REACTIONS (7)
  - INTESTINAL OBSTRUCTION [None]
  - ELECTROLYTE IMBALANCE [None]
  - HAEMOGLOBIN DECREASED [None]
  - APPENDIX DISORDER [None]
  - WHITE BLOOD CELL COUNT INCREASED [None]
  - PNEUMONIA [None]
  - THROMBOCYTOSIS [None]
